FAERS Safety Report 21314705 (Version 1)
Quarter: 2022Q3

REPORT INFORMATION
  Report Type: Spontaneous
  Country: US (occurrence: None)
  Receive Date: 20220909
  Receipt Date: 20220909
  Transmission Date: 20221027
  Serious: No
  Sender: FDA-Public Use
  Company Number: US-ARIS GLOBAL-202110-1944

PATIENT
  Sex: Female

DRUGS (6)
  1. OXERVATE [Suspect]
     Active Substance: CENEGERMIN-BKBJ
     Indication: Neurotrophic keratopathy
     Route: 047
     Dates: start: 20211013
  2. VITAMIN D-400 [Concomitant]
  3. MULTI-VITAMIN DAILY TABLET [Concomitant]
  4. IRON [Concomitant]
     Active Substance: IRON
     Dosage: 159(45) MG TABLET EXTENDED RELEASE
  5. NORETHINDRONE-E.ESTRADIOL-IRON [Concomitant]
  6. REMICADE [Concomitant]
     Active Substance: INFLIXIMAB
     Dosage: 100 MG VIAL

REACTIONS (3)
  - Eye swelling [Not Recovered/Not Resolved]
  - Swelling of eyelid [Not Recovered/Not Resolved]
  - Lacrimation increased [Not Recovered/Not Resolved]
